FAERS Safety Report 8485275-4 (Version None)
Quarter: 2012Q3

REPORT INFORMATION
  Report Type: 
  Country: None (occurrence: None)
  Receive Date: 20120703
  Receipt Date: 20120628
  Transmission Date: 20120928
  Serious: No
  Sender: FDA-Public Use
  Company Number: US-PFIZER INC-2012156562

PATIENT
  Sex: Female
  Weight: 57.596 kg

DRUGS (6)
  1. YAZ [Concomitant]
     Indication: CONTRACEPTION
     Dosage: UNK, DAILY
  2. GABAPENTIN [Suspect]
     Indication: MULTIPLE SCLEROSIS
  3. SYNTHROID [Concomitant]
     Indication: AUTOIMMUNE THYROIDITIS
     Dosage: 100 UG, DAILY
  4. LEXAPRO [Concomitant]
     Indication: DEPRESSION
     Dosage: 20 MG, DAILY
  5. GABAPENTIN [Suspect]
     Indication: NEUROLOGICAL SYMPTOM
     Dosage: 100 MG, 3X/DAY
     Dates: start: 20120625
  6. LEXAPRO [Concomitant]
     Indication: ANXIETY

REACTIONS (1)
  - DRUG INEFFECTIVE [None]
